FAERS Safety Report 25606239 (Version 2)
Quarter: 2025Q3

REPORT INFORMATION
  Report Type: Spontaneous
  Country: CA (occurrence: CA)
  Receive Date: 20250725
  Receipt Date: 20250924
  Transmission Date: 20251021
  Serious: Yes (Other)
  Sender: PFIZER
  Company Number: CA-PFIZER INC-202500002706

PATIENT
  Age: 68 Year
  Sex: Female

DRUGS (4)
  1. ABRILADA [Suspect]
     Active Substance: ADALIMUMAB-AFZB
     Indication: Rheumatoid arthritis
     Route: 058
     Dates: start: 20241225
  2. HYDROXYCHLOROQUINE [Concomitant]
     Active Substance: HYDROXYCHLOROQUINE
     Dosage: 400 MG, 1X/DAY
     Route: 065
     Dates: start: 202210
  3. NAPROXEN [Concomitant]
     Active Substance: NAPROXEN
     Dosage: 500 MG, 2X/DAY
     Route: 065
  4. PREGABALIN [Concomitant]
     Active Substance: PREGABALIN
     Indication: Nerve injury
     Dosage: 100 MG, 2X/DAY
     Route: 065

REACTIONS (3)
  - Pancreatic carcinoma stage IV [Unknown]
  - Jaundice [Unknown]
  - Hepatic mass [Unknown]
